FAERS Safety Report 4570276-9 (Version None)
Quarter: 2005Q1

REPORT INFORMATION
  Report Type: 
  Country: None (occurrence: None)
  Receive Date: 20050202
  Receipt Date: 20050124
  Transmission Date: 20050727
  Serious: Yes (Death, Life-Threatening, Hospitalization)
  Sender: FDA-Public Use
  Company Number: F01200500140

PATIENT
  Age: 75 Year

DRUGS (9)
  1. OXALIPLATIN [Suspect]
     Indication: COLORECTAL CANCER METASTATIC
     Dosage: 85 MG/M2 Q2W - INTRAVENOUS NOS
     Route: 042
     Dates: start: 20030430, end: 20030430
  2. OXALIPLATIN [Suspect]
     Indication: COLORECTAL CANCER METASTATIC
     Dosage: 85 MG/M2 Q2W - INTRAVENOUS NOS
     Route: 042
     Dates: start: 20031223, end: 20031223
  3. FLUOROURACIL [Suspect]
     Dosage: 400 MG/M2 AS IV BOLUS FOLLOWED BY 600 MG/M2 AS IV CONTINUOUS INFUSION, Q2W - INTRAVENOUS NOS
     Route: 042
     Dates: start: 20030430, end: 20030430
  4. LEUCOVORIN CALCIUM [Suspect]
     Dosage: 200 MG/M2 Q2W - INTRAVENOUS NOS
     Route: 042
     Dates: start: 20030430, end: 20030430
  5. BEVACIZUMAB - SOLUTION - 10 MG/KG [Suspect]
     Dosage: 10 MG/KG Q2W - INTRAVENOUS NOS
     Route: 042
     Dates: start: 20030430, end: 20030430
  6. BEVACIZUMAB [Suspect]
     Dosage: 10 MG/KG Q2W - INTRAVENOUS NOS
     Route: 042
     Dates: start: 20031223, end: 20031223
  7. DOLASETRON MESILATE [Concomitant]
  8. HYDROMORPHONE HYDROCHLORIDE [Concomitant]
  9. MORPHINE SULFATE [Concomitant]

REACTIONS (12)
  - CHILLS [None]
  - CONSTIPATION [None]
  - FAECAL VOLUME INCREASED [None]
  - FALL [None]
  - HIP FRACTURE [None]
  - LUNG INFILTRATION [None]
  - NEUTROPHIL COUNT DECREASED [None]
  - PNEUMONIA [None]
  - PNEUMONITIS [None]
  - PYREXIA [None]
  - TACHYCARDIA [None]
  - VOMITING [None]
